FAERS Safety Report 6372973-1 (Version None)
Quarter: 2009Q3

REPORT INFORMATION
  Report Type: 
  Country: None (occurrence: None)
  Receive Date: 20090924
  Receipt Date: 20081218
  Transmission Date: 20100115
  Serious: No
  Sender: FDA-Public Use
  Company Number: US-ASTRAZENECA-2008UW28319

PATIENT
  Sex: Female

DRUGS (7)
  1. SEROQUEL XR [Suspect]
     Indication: ANXIETY
     Route: 048
     Dates: start: 20081213, end: 20081213
  2. SEROQUEL XR [Suspect]
     Indication: SEDATIVE THERAPY
     Route: 048
     Dates: start: 20081213, end: 20081213
  3. DANOCRIN [Concomitant]
  4. ATARAX [Concomitant]
  5. VASOTEC [Concomitant]
  6. HYDROCHLOROTHIAZIDE [Concomitant]
  7. XANAX [Concomitant]

REACTIONS (11)
  - ANXIETY [None]
  - BLOOD PRESSURE INCREASED [None]
  - CARDIAC MURMUR [None]
  - CHEST DISCOMFORT [None]
  - DRUG INEFFECTIVE [None]
  - DRY MOUTH [None]
  - HEART RATE INCREASED [None]
  - ILL-DEFINED DISORDER [None]
  - PALPITATIONS [None]
  - SCREAMING [None]
  - THIRST [None]
